FAERS Safety Report 16140861 (Version 1)
Quarter: 2019Q2

REPORT INFORMATION
  Report Type: Spontaneous
  Country: US (occurrence: US)
  Receive Date: 20190330
  Receipt Date: 20190330
  Transmission Date: 20190711
  Serious: Yes (Disabling, Other)
  Sender: FDA-Public Use
  Company Number: None

PATIENT
  Age: 55 Year
  Sex: Female
  Weight: 85.95 kg

DRUGS (4)
  1. VENLAFAXINE-ER 150 MG [Suspect]
     Active Substance: VENLAFAXINE HYDROCHLORIDE
     Indication: DEPRESSION
     Dosage: ?          QUANTITY:150 CAPSULE(S);?
     Route: 048
     Dates: start: 20140201, end: 20190301
  2. VITAMIN D3 [Concomitant]
     Active Substance: CHOLECALCIFEROL
  3. VITAMIN E [Concomitant]
     Active Substance: .ALPHA.-TOCOPHEROL
  4. VENLAFAXINE-ER 150 MG [Suspect]
     Active Substance: VENLAFAXINE HYDROCHLORIDE
     Indication: ANXIETY
     Dosage: ?          QUANTITY:150 CAPSULE(S);?
     Route: 048
     Dates: start: 20140201, end: 20190301

REACTIONS (8)
  - Nausea [None]
  - Somnolence [None]
  - Withdrawal syndrome [None]
  - Headache [None]
  - Hyperhidrosis [None]
  - Vision blurred [None]
  - Vomiting [None]
  - Rash [None]

NARRATIVE: CASE EVENT DATE: 20190303
